FAERS Safety Report 15585081 (Version 1)
Quarter: 2018Q4

REPORT INFORMATION
  Report Type: Spontaneous
  Country: ES (occurrence: ES)
  Receive Date: 20181105
  Receipt Date: 20181105
  Transmission Date: 20190205
  Serious: Yes (Hospitalization)
  Sender: FDA-Public Use
  Company Number: ES-TEVA-2018-ES-972466

PATIENT
  Age: 73 Year
  Sex: Male

DRUGS (1)
  1. AMOXICILINA + ?CIDO CLAVUL?NICO [Suspect]
     Active Substance: AMOXICILLIN\CLAVULANIC ACID
     Dosage: 875 MILLIGRAM DAILY;
     Route: 048
     Dates: start: 20180914, end: 20180916

REACTIONS (3)
  - Pneumonia [Unknown]
  - Inappropriate schedule of product administration [Recovered/Resolved]
  - Drug ineffective [Unknown]

NARRATIVE: CASE EVENT DATE: 20180914
